FAERS Safety Report 26115431 (Version 1)
Quarter: 2025Q4

REPORT INFORMATION
  Report Type: Spontaneous
  Country: EU (occurrence: EU)
  Receive Date: 20251203
  Receipt Date: 20251203
  Transmission Date: 20260118
  Serious: Yes (Hospitalization)
  Sender: ORGANON
  Company Number: None

PATIENT
  Age: 93 Year
  Sex: Female
  Weight: 54.2 kg

DRUGS (8)
  1. MIRTAZAPINE [Suspect]
     Active Substance: MIRTAZAPINE
     Indication: Depression
     Dosage: 45 MILLIGRAM, QD
     Dates: start: 20250823, end: 20251105
  2. METHIMAZOLE [Suspect]
     Active Substance: METHIMAZOLE
     Indication: Hyperthyroidism
     Dosage: 10 MILLIGRAM, QD
     Dates: start: 20250917, end: 20251105
  3. MELATONINE ARROW LP 2 mg, extended release tablet [Concomitant]
     Indication: Sleep disorder
     Dosage: 2 MILLIGRAM, QD
     Dates: start: 20251017
  4. AMLODIPINE [Concomitant]
     Active Substance: AMLODIPINE BESYLATE
     Indication: Hypertension
     Dosage: 5 MILLIGRAM, QD
     Dates: start: 20250812
  5. PROPRANOLOL [Concomitant]
     Active Substance: PROPRANOLOL HYDROCHLORIDE
     Indication: Tachycardia
     Dosage: 20 MILLIGRAM, Q12H
     Dates: start: 20250819
  6. OXAZEPAM [Concomitant]
     Active Substance: OXAZEPAM
     Indication: Anxiety
     Dosage: 10 MILLIGRAM, QD
  7. TARDYFERON 80 mg, Film coated tablet [Concomitant]
     Indication: Anaemia
     Dosage: 80MG - 80MG - 0
     Dates: start: 20251015
  8. DOLIPRANE [Concomitant]
     Active Substance: ACETAMINOPHEN
     Indication: Pain
     Dosage: 1 GRAM, Q8H

REACTIONS (2)
  - Febrile bone marrow aplasia [Recovered/Resolved]
  - Hepatic cytolysis [Recovering/Resolving]

NARRATIVE: CASE EVENT DATE: 20251104
